FAERS Safety Report 8621846-X (Version None)
Quarter: 2012Q3

REPORT INFORMATION
  Report Type: 
  Country: None (occurrence: None)
  Receive Date: 20120822
  Receipt Date: 20120822
  Transmission Date: 20120928
  Serious: Yes (Hospitalization)
  Sender: FDA-Public Use
  Company Number: None

PATIENT
  Age: 62 Year
  Sex: Male
  Weight: 106.4 kg

DRUGS (1)
  1. METOPROLOL [Suspect]
     Dosage: BID MG PO
     Route: 048
     Dates: start: 20120216, end: 20120619

REACTIONS (1)
  - BRADYCARDIA [None]
